FAERS Safety Report 8100446-4 (Version None)
Quarter: 2012Q1

REPORT INFORMATION
  Report Type: 
  Country: None (occurrence: None)
  Receive Date: 20120129
  Receipt Date: 20111202
  Transmission Date: 20120608
  Serious: Yes (Hospitalization, Other)
  Sender: FDA-Public Use
  Company Number: US-ABBOTT-11P-163-0870564-00

PATIENT
  Age: 31 Year
  Sex: Male

DRUGS (10)
  1. FLAGYL [Concomitant]
     Indication: PRODUCT USED FOR UNKNOWN INDICATION
     Dosage: DAILY
  2. HUMIRA [Suspect]
     Indication: CROHN'S DISEASE
     Dates: start: 20060101, end: 20080301
  3. TIZANIDINE HYDROCHLORIDE [Concomitant]
     Indication: PRODUCT USED FOR UNKNOWN INDICATION
  4. AMLODIPINE [Concomitant]
     Indication: PRODUCT USED FOR UNKNOWN INDICATION
     Dosage: NOT REPORTED
  5. PHENERGAN [Concomitant]
     Indication: NAUSEA
  6. SULFASALAZINE [Concomitant]
     Indication: PRODUCT USED FOR UNKNOWN INDICATION
  7. OPTANA [Concomitant]
     Indication: ANKYLOSING SPONDYLITIS
     Dosage: DAILY
  8. HUMIRA [Suspect]
     Dosage: 160MG LOADING DOSE
     Dates: start: 20111107
  9. ROXICODONE [Concomitant]
     Indication: PAIN
  10. OXYCODONE HCL [Concomitant]
     Indication: PRODUCT USED FOR UNKNOWN INDICATION

REACTIONS (7)
  - COLECTOMY [None]
  - ILL-DEFINED DISORDER [None]
  - ILEOSTOMY CLOSURE [None]
  - HYPERTENSION [None]
  - CROHN'S DISEASE [None]
  - HIP ARTHROPLASTY [None]
  - ILEOSTOMY [None]
